FAERS Safety Report 5840296-2 (Version None)
Quarter: 2008Q3

REPORT INFORMATION
  Report Type: 
  Country: None (occurrence: None)
  Receive Date: 20080730
  Receipt Date: 20080430
  Transmission Date: 20090109
  Serious: No
  Sender: FDA-Public Use
  Company Number: PHEH2008US04251

PATIENT
  Sex: Female

DRUGS (1)
  1. TEKTURNA [Suspect]
     Indication: HYPERTENSION
     Dosage: 150 MG, QD, ORAL
     Route: 048
     Dates: start: 20080201

REACTIONS (6)
  - NASAL CONGESTION [None]
  - NASOPHARYNGITIS [None]
  - PRODUCTIVE COUGH [None]
  - SEASONAL ALLERGY [None]
  - THROAT IRRITATION [None]
  - WHEEZING [None]
